FAERS Safety Report 7664377-6 (Version None)
Quarter: 2011Q3

REPORT INFORMATION
  Report Type: 
  Country: None (occurrence: None)
  Receive Date: 20110806
  Receipt Date: 20110117
  Transmission Date: 20111222
  Serious: No
  Sender: FDA-Public Use
  Company Number: US-ABBOTT-11P-163-0699826-00

PATIENT
  Sex: Female
  Weight: 53.572 kg

DRUGS (8)
  1. PANTOPRAZOLE [Concomitant]
     Indication: GASTROOESOPHAGEAL REFLUX DISEASE
  2. NIASPAN [Suspect]
     Indication: BLOOD TRIGLYCERIDES INCREASED
     Dates: start: 19980101
  3. NATURAL SUPPLEMENTS [Concomitant]
     Indication: PRODUCT USED FOR UNKNOWN INDICATION
  4. PANTOPRAZOLE [Concomitant]
     Indication: IRRITABLE BOWEL SYNDROME
  5. DILTIAZEM [Concomitant]
     Indication: HYPERTENSION
  6. ESTRADIOL [Concomitant]
     Indication: HOT FLUSH
  7. ASPIRIN [Concomitant]
     Indication: PRODUCT USED FOR UNKNOWN INDICATION
  8. CARAFATE [Concomitant]
     Indication: GASTROOESOPHAGEAL REFLUX DISEASE

REACTIONS (3)
  - HOT FLUSH [None]
  - PRURITUS [None]
  - ERYTHEMA [None]
